FAERS Safety Report 7481781-X (Version None)
Quarter: 2011Q2

REPORT INFORMATION
  Report Type: 
  Country: None (occurrence: None)
  Receive Date: 20110516
  Receipt Date: 20110510
  Transmission Date: 20111010
  Serious: Yes (Hospitalization)
  Sender: FDA-Public Use
  Company Number: FR-SANOFI-AVENTIS-2011SA029273

PATIENT
  Age: 77 Year
  Sex: Female

DRUGS (6)
  1. LORAZEPAM [Concomitant]
     Route: 065
  2. INDORAMIN [Concomitant]
     Route: 065
  3. ACETAMINOPHEN [Concomitant]
     Route: 065
  4. PLAQUENIL [Suspect]
     Indication: CUTANEOUS LUPUS ERYTHEMATOSUS
     Route: 048
     Dates: start: 20090101, end: 20110412
  5. COZAAR [Concomitant]
     Route: 065
  6. TRIMETAZIDINE HYDROCHLORIDE [Concomitant]
     Route: 065

REACTIONS (1)
  - MYALGIA [None]
